FAERS Safety Report 7903678-0 (Version None)
Quarter: 2011Q4

REPORT INFORMATION
  Report Type: 
  Country: None (occurrence: None)
  Receive Date: 20111027
  Receipt Date: 20110815
  Transmission Date: 20120403
  Serious: Yes (Other)
  Sender: FDA-Public Use
  Company Number: 2011-2668

PATIENT
  Age: 7 Year
  Sex: Female
  Weight: 17 kg

DRUGS (2)
  1. INCRELEX [Suspect]
     Indication: INSULIN-LIKE GROWTH FACTOR DECREASED
     Dosage: 14 UNITS (17 UNITS,2 IN 1 D),SUBCUTANEOUS ; 7 UNTS (3.5 UNITS,2 IN 1 D),SUBCUTANEOUS
     Route: 058
     Dates: start: 20110808
  2. INCRELEX [Suspect]
     Indication: INSULIN-LIKE GROWTH FACTOR DECREASED
     Dosage: 14 UNITS (17 UNITS,2 IN 1 D),SUBCUTANEOUS ; 7 UNTS (3.5 UNITS,2 IN 1 D),SUBCUTANEOUS
     Route: 058
     Dates: start: 20010721

REACTIONS (1)
  - HEADACHE [None]
